FAERS Safety Report 8908987 (Version 1)
Quarter: 2012Q4

REPORT INFORMATION
  Report Type: 
  Country: US (occurrence: US)
  Receive Date: 20121113
  Receipt Date: 20121113
  Transmission Date: 20130627
  Serious: No
  Sender: FDA-Public Use
  Company Number: US-AMGEN-USASP2012011657

PATIENT
  Age: 60 Year
  Sex: Female
  Weight: 65.31 kg

DRUGS (5)
  1. ENBREL [Suspect]
     Indication: PSORIATIC ARTHROPATHY
     Dosage: 50 mg, qwk
     Route: 058
  2. NAPROSYN /00256201/ [Concomitant]
     Dosage: 250 mg, UNK
     Route: 048
  3. METHOTREXATE [Concomitant]
     Dosage: 2.5 mg, UNK
     Route: 048
  4. VITAMIN D /00107901/ [Concomitant]
     Dosage: 1000 IU, UNK
     Route: 048
  5. FOLIC ACID [Concomitant]
     Route: 048

REACTIONS (3)
  - Bronchitis [Unknown]
  - Injection site reaction [Unknown]
  - Injection site bruising [Unknown]
